FAERS Safety Report 7633084-8 (Version None)
Quarter: 2011Q3

REPORT INFORMATION
  Report Type: 
  Country: None (occurrence: None)
  Receive Date: 20110725
  Receipt Date: 20110720
  Transmission Date: 20111222
  Serious: Yes (Life-Threatening, Other)
  Sender: FDA-Public Use
  Company Number: PHHY2011FR65001

PATIENT
  Age: 53 Year
  Sex: Female

DRUGS (1)
  1. CERTICAN [Suspect]
     Indication: GRAFT VERSUS HOST DISEASE
     Dosage: 1 MG
     Dates: start: 20100916, end: 20100920

REACTIONS (13)
  - PANCREATITIS ACUTE [None]
  - LIPASE INCREASED [None]
  - VOMITING [None]
  - RENAL FAILURE ACUTE [None]
  - HYPONATRAEMIA [None]
  - HYPERTRIGLYCERIDAEMIA [None]
  - DIARRHOEA [None]
  - HYPOTENSION [None]
  - METABOLIC ACIDOSIS [None]
  - MALNUTRITION [None]
  - BLOOD AMYLASE INCREASED [None]
  - DEHYDRATION [None]
  - HYPOVOLAEMIA [None]
